FAERS Safety Report 6522037-9 (Version None)
Quarter: 2009Q4

REPORT INFORMATION
  Report Type: 
  Country: None (occurrence: None)
  Receive Date: 20091224
  Receipt Date: 20091221
  Transmission Date: 20100525
  Serious: Yes (Death, Hospitalization)
  Sender: FDA-Public Use
  Company Number: 2009AC000523

PATIENT
  Age: 73 Year
  Sex: Female

DRUGS (55)
  1. DIGOXIN [Suspect]
     Dosage: 0.25 MG; QD; PO
     Route: 048
     Dates: start: 20070403
  2. DIGOXIN [Suspect]
     Dosage: 0.25 MG; QD; PO
     Route: 048
     Dates: start: 20041201
  3. GLYBURIDE [Concomitant]
  4. SYNTHROID [Concomitant]
  5. HUMULIN N [Concomitant]
  6. FELDENE [Concomitant]
  7. NABUMETONE [Concomitant]
  8. NORTRIPTYLINE HCL [Concomitant]
  9. LORTAB [Concomitant]
  10. METHYLDOPA [Concomitant]
  11. LASIX [Concomitant]
  12. PAMELOR [Concomitant]
  13. FENTANYL-100 [Concomitant]
  14. BUSPAR [Concomitant]
  15. ZYPREXA [Concomitant]
  16. ACTOS [Concomitant]
  17. SEROQUEL [Concomitant]
  18. BUMEX [Concomitant]
  19. PROTONIX [Concomitant]
  20. COREG [Concomitant]
  21. DUONEB [Concomitant]
  22. VANCOMYCIN [Concomitant]
  23. MAXIPIME [Concomitant]
  24. PHENERGAN HCL [Concomitant]
  25. LEVAQUIN [Concomitant]
  26. PROCRIT [Concomitant]
  27. LOVENOX [Concomitant]
  28. NOVOLIN [Concomitant]
  29. DARVOCET-N 100 [Concomitant]
  30. ACETAMINOPHEN [Concomitant]
  31. KLONOPIN [Concomitant]
  32. XANAX [Concomitant]
  33. LOPERAMIDE [Concomitant]
  34. AMITRIPTYLINE [Concomitant]
  35. BUSPAR [Concomitant]
  36. PAXIL [Concomitant]
  37. LOTENSIN [Concomitant]
  38. METHYLDOPA [Concomitant]
  39. CENTRUM SILVER VITAMINS [Concomitant]
  40. ASPIRIN [Concomitant]
  41. HUMULIN INSULIN [Concomitant]
  42. ACTOS [Concomitant]
  43. ALBUTEROL [Concomitant]
  44. ALPRAZOLAM [Concomitant]
  45. CARVEDILOL [Concomitant]
  46. DIPHENHYDRAMINE HCL [Concomitant]
  47. LEXAPRO [Concomitant]
  48. GUAIFENESIN [Concomitant]
  49. HYDROXYZINE [Concomitant]
  50. LEVOFLOXACIN [Concomitant]
  51. LEVOTHRYROXINE [Concomitant]
  52. MULTI-VITAMINS [Concomitant]
  53. NOVOLIN [Concomitant]
  54. NYSTATIN [Concomitant]
  55. QUETIAPINE FUMARATE [Concomitant]

REACTIONS (49)
  - ANXIETY [None]
  - ARTHRALGIA [None]
  - ATRIOVENTRICULAR BLOCK FIRST DEGREE [None]
  - BLOOD GLUCOSE INCREASED [None]
  - BRADYARRHYTHMIA [None]
  - BRONCHIAL SECRETION RETENTION [None]
  - CARDIAC FAILURE CONGESTIVE [None]
  - CARDIAC FLUTTER [None]
  - CARDIOMEGALY [None]
  - COMMUNICATION DISORDER [None]
  - DEATH OF RELATIVE [None]
  - DECREASED APPETITE [None]
  - DIALYSIS [None]
  - DYSPNOEA [None]
  - DYSPNOEA EXERTIONAL [None]
  - ELECTROCARDIOGRAM ST-T CHANGE [None]
  - EMOTIONAL DISTRESS [None]
  - ENDOCARDITIS BACTERIAL [None]
  - EXTRASYSTOLES [None]
  - GASTROOESOPHAGEAL REFLUX DISEASE [None]
  - HYPOTHERMIA [None]
  - INSOMNIA [None]
  - LEFT VENTRICULAR HYPERTROPHY [None]
  - LETHARGY [None]
  - LOOSE TOOTH [None]
  - LOSS OF CONSCIOUSNESS [None]
  - MALAISE [None]
  - MENTAL STATUS CHANGES [None]
  - MONOPLEGIA [None]
  - MULTIPLE INJURIES [None]
  - NERVOUSNESS [None]
  - OEDEMA [None]
  - OEDEMA PERIPHERAL [None]
  - PAIN [None]
  - PAIN IN JAW [None]
  - PALPITATIONS [None]
  - PANIC ATTACK [None]
  - PLEURAL EFFUSION [None]
  - PNEUMONIA [None]
  - PULSE PRESSURE DECREASED [None]
  - PURPURA [None]
  - REFUSAL OF TREATMENT BY PATIENT [None]
  - RENAL FAILURE [None]
  - RESPIRATORY ACIDOSIS [None]
  - RESPIRATORY FAILURE [None]
  - SUICIDAL IDEATION [None]
  - TEARFULNESS [None]
  - TENDERNESS [None]
  - THERAPEUTIC AGENT TOXICITY [None]
